FAERS Safety Report 7449550-4 (Version None)
Quarter: 2011Q2

REPORT INFORMATION
  Report Type: 
  Country: None (occurrence: None)
  Receive Date: 20110502
  Receipt Date: 20110426
  Transmission Date: 20111010
  Serious: Yes (Other)
  Sender: FDA-Public Use
  Company Number: US-BAYER-2011-035839

PATIENT
  Sex: Female

DRUGS (1)
  1. NEXAVAR [Suspect]

REACTIONS (4)
  - MOUTH ULCERATION [None]
  - SWOLLEN TONGUE [None]
  - THROAT TIGHTNESS [None]
  - MOUTH INJURY [None]
